FAERS Safety Report 4432788-8 (Version None)
Quarter: 2004Q3

REPORT INFORMATION
  Report Type: 
  Country: None (occurrence: None)
  Receive Date: 20040721
  Receipt Date: 20040525
  Transmission Date: 20050211
  Serious: Yes (Other)
  Sender: FDA-Public Use
  Company Number: 2004016439

PATIENT
  Age: 35 Year
  Sex: Female
  Weight: 131.0895 kg

DRUGS (4)
  1. RELPAX [Suspect]
     Indication: MIGRAINE
     Dosage: 40 MG (40 MG, PRN), ORAL
     Route: 048
     Dates: start: 20040304
  2. GLUCOPHAGE [Concomitant]
  3. SEVERAL OTHER MEDICATIONS (ALL OTHER THERAPEUTIC PRODUCTS) [Concomitant]
  4. LEXAPRO [Concomitant]

REACTIONS (2)
  - ERYTHEMA [None]
  - HYPERHIDROSIS [None]
